FAERS Safety Report 9219833 (Version 1)
Quarter: 2013Q1

REPORT INFORMATION
  Report Type: Spontaneous
  Country: US (occurrence: None)
  Receive Date: 20120831
  Receipt Date: 20120831
  Transmission Date: 20140127
  Serious: No
  Sender: FDA-Public Use
  Company Number: 1000030383

PATIENT
  Sex: Female

DRUGS (1)
  1. DALIRESP [Suspect]
     Indication: ASTHMA
     Route: 048
     Dates: start: 20120504, end: 20120508

REACTIONS (8)
  - Decreased appetite [None]
  - Asthma [None]
  - Dizziness [None]
  - Insomnia [None]
  - Flushing [None]
  - Influenza like illness [None]
  - Migraine [None]
  - Off label use [None]
